FAERS Safety Report 10724238 (Version 4)
Quarter: 2015Q1

REPORT INFORMATION
  Report Type: Spontaneous
  Country: FR (occurrence: FR)
  Receive Date: 20150120
  Receipt Date: 20150306
  Transmission Date: 20150721
  Serious: Yes (Hospitalization)
  Sender: FDA-Public Use
  Company Number: FR-PFIZER INC-2015016516

PATIENT
  Age: 56 Year
  Sex: Male

DRUGS (33)
  1. PRIMPERAN [Concomitant]
     Active Substance: METOCLOPRAMIDE HYDROCHLORIDE
     Dosage: 30 MG, 1X/DAY
     Route: 041
     Dates: start: 20141121
  2. ACUPAN [Concomitant]
     Active Substance: NEFOPAM HYDROCHLORIDE
     Dosage: 20 MG, 3X/DAY
     Route: 002
     Dates: start: 20141121
  3. ACICLOVIR [Suspect]
     Active Substance: ACYCLOVIR
     Dosage: 250 MG, 3X/DAY
     Route: 042
     Dates: start: 20141126, end: 20141207
  4. ZOPHREN [Suspect]
     Active Substance: ONDANSETRON
     Dosage: 1 DF, DAILY
     Route: 042
     Dates: start: 20141105, end: 201412
  5. ARACYTINE [Suspect]
     Active Substance: CYTARABINE
     Dosage: 40 MG, SINGLE
     Route: 037
     Dates: start: 20141123, end: 20141123
  6. METHOTREXATE [Suspect]
     Active Substance: METHOTREXATE
     Dosage: 15 MG, SINGLE
     Route: 037
     Dates: start: 20141126, end: 20141126
  7. TASIGNA [Suspect]
     Active Substance: NILOTINIB
     Indication: CHRONIC MYELOID LEUKAEMIA
     Dosage: 300 MG (2 CAPSULES OF 150 MG), 2X/DAY
     Route: 048
     Dates: start: 201404, end: 20141030
  8. TIENAM [Suspect]
     Active Substance: CILASTATIN SODIUM\IMIPENEM
     Dosage: 1 G, 3X/DAY
     Route: 042
     Dates: start: 20141126, end: 201412
  9. VANCOMYCIN [Suspect]
     Active Substance: VANCOMYCIN
     Dosage: 2500 MG, 1X/DAY
     Route: 042
     Dates: start: 20141124, end: 20141130
  10. SPASFON [Concomitant]
     Active Substance: PHLOROGLUCINOL
     Dosage: 3 DF, 1X/DAY
     Route: 041
     Dates: start: 20141126
  11. ARACYTINE [Suspect]
     Active Substance: CYTARABINE
     Indication: CHRONIC MYELOID LEUKAEMIA
     Dosage: 40 MG, SINGLE
     Route: 037
     Dates: start: 20141121, end: 20141121
  12. CYTARABINE. [Suspect]
     Active Substance: CYTARABINE
     Dosage: 400 MG, DAILY
     Route: 042
     Dates: start: 20141201, end: 20141216
  13. METHYLPREDNISOLONE ACETATE. [Suspect]
     Active Substance: METHYLPREDNISOLONE ACETATE
     Dosage: 40 MG, SINGLE
     Route: 037
     Dates: start: 20141123, end: 20141123
  14. METHYLPREDNISOLONE ACETATE. [Suspect]
     Active Substance: METHYLPREDNISOLONE ACETATE
     Dosage: 40 MG, SINGLE
     Route: 037
     Dates: start: 20141126, end: 20141126
  15. METHYLPREDNISOLONE ACETATE. [Suspect]
     Active Substance: METHYLPREDNISOLONE ACETATE
     Dosage: 40 MG, SINGLE
     Route: 037
     Dates: start: 20141209, end: 20141209
  16. TAZOCILLINE [Suspect]
     Active Substance: PIPERACILLIN SODIUM\TAZOBACTAM SODIUM
     Dosage: 4 G, 4X/DAY
     Route: 042
     Dates: start: 20141106, end: 20141126
  17. ARACYTINE [Suspect]
     Active Substance: CYTARABINE
     Dosage: 40 MG, SINGLE
     Route: 037
     Dates: start: 20141209, end: 20141209
  18. CYTARABINE. [Suspect]
     Active Substance: CYTARABINE
     Indication: CHRONIC MYELOID LEUKAEMIA
     Dosage: 400 MG, DAILY
     Route: 041
     Dates: start: 20141105, end: 20141111
  19. METHOTREXATE [Suspect]
     Active Substance: METHOTREXATE
     Dosage: 15 MG, SINGLE
     Route: 037
     Dates: start: 20141123, end: 20141123
  20. METHOTREXATE [Suspect]
     Active Substance: METHOTREXATE
     Dosage: 15 MG, SINGLE
     Route: 037
     Dates: start: 20141209, end: 20141209
  21. EUPANTOL [Suspect]
     Active Substance: PANTOPRAZOLE SODIUM
     Dosage: 40 MG, DAILY
     Route: 042
     Dates: start: 20141127, end: 20141207
  22. CERUBIDIN [Suspect]
     Active Substance: DAUNORUBICIN
     Indication: CHRONIC MYELOID LEUKAEMIA
     Dosage: 60 MG, DAILY
     Route: 042
     Dates: start: 20141105, end: 20141106
  23. CERUBIDIN [Suspect]
     Active Substance: DAUNORUBICIN
     Dosage: 120 MG, DAILY
     Route: 041
     Dates: start: 20141107, end: 20141108
  24. AMBISOME [Suspect]
     Active Substance: AMPHOTERICIN B
     Dosage: 270 MG, DAILY
     Route: 042
     Dates: start: 20141121, end: 201412
  25. TOPALGIC [Suspect]
     Active Substance: TRAMADOL
     Dosage: 50 MG, 4X/DAY
     Route: 048
     Dates: start: 201411, end: 201412
  26. ARACYTINE [Suspect]
     Active Substance: CYTARABINE
     Dosage: 40 MG, SINGLE
     Route: 037
     Dates: start: 20141126, end: 20141126
  27. METHOTREXATE [Suspect]
     Active Substance: METHOTREXATE
     Indication: CHRONIC MYELOID LEUKAEMIA
     Dosage: 15 MG, UNK
     Route: 037
     Dates: start: 20141121, end: 20141121
  28. METHYLPREDNISOLONE ACETATE. [Suspect]
     Active Substance: METHYLPREDNISOLONE ACETATE
     Dosage: 40 MG, SINGLE
     Route: 037
     Dates: start: 20141121, end: 20141121
  29. MITOXANTRONE [Suspect]
     Active Substance: MITOXANTRONE HYDROCHLORIDE
     Dosage: 24 MG ON DAY 1 AND DAY 2
  30. TRANXENE T-TAB [Concomitant]
     Active Substance: CLORAZEPATE DIPOTASSIUM
     Dosage: 1 DF, 1X/DAY
     Route: 041
     Dates: start: 20141126
  31. ZYVOXID [Suspect]
     Active Substance: LINEZOLID
     Dosage: 600 MG (1 TABLET), 2X/DAY
     Route: 048
     Dates: start: 20141110, end: 20141124
  32. FLAGYL [Suspect]
     Active Substance: METRONIDAZOLE\METRONIDAZOLE HYDROCHLORIDE
     Dosage: 500 MG (1 TABLET), 3X/DAY
     Route: 048
     Dates: start: 20141125, end: 201412
  33. POLARAMINE [Suspect]
     Active Substance: DEXCHLORPHENIRAMINE MALEATE
     Dosage: 1 DF, 1X/DAY
     Route: 042
     Dates: start: 20141121, end: 201412

REACTIONS (2)
  - Phlebitis [Unknown]
  - Deep vein thrombosis [Recovering/Resolving]

NARRATIVE: CASE EVENT DATE: 20141201
